FAERS Safety Report 5206655-6 (Version None)
Quarter: 2006Q4

REPORT INFORMATION
  Report Type: 
  Country: None (occurrence: None)
  Receive Date: 20061026
  Receipt Date: 20060707
  Transmission Date: 20070319
  Serious: No
  Sender: FDA-Public Use
  Company Number: 2006087084

PATIENT
  Age: 64 Year
  Sex: Female
  Weight: 90.7194 kg

DRUGS (9)
  1. LYRICA [Suspect]
     Indication: DIABETIC NEUROPATHY
     Dosage: 75 MG (75 MG, 1 IN 1 D)
     Dates: start: 20060101, end: 20060601
  2. ZYRTEC [Suspect]
     Indication: HYPERSENSITIVITY
     Dosage: 10 MG (5 MG, 2 IN 1 D)
  3. MONTELUKAST SODIUM [Suspect]
     Indication: HYPERSENSITIVITY
  4. CELEBREX [Concomitant]
  5. GLUCOVANCE [Concomitant]
  6. VALSARTAN [Concomitant]
  7. ASPIRIN [Concomitant]
  8. ACTONEL [Concomitant]
  9. DIURETICS [Concomitant]

REACTIONS (2)
  - EAR INFECTION [None]
  - OEDEMA PERIPHERAL [None]
